FAERS Safety Report 9869444 (Version 1)
Quarter: 2014Q1

REPORT INFORMATION
  Report Type: Spontaneous
  Country: US (occurrence: US)
  Receive Date: 20140205
  Receipt Date: 20140205
  Transmission Date: 20141002
  Serious: No
  Sender: FDA-Public Use
  Company Number: US-PFIZER INC-2014028555

PATIENT
  Sex: Male

DRUGS (2)
  1. CHANTIX [Suspect]
     Indication: TOBACCO ABUSE
     Dosage: 0.5 MG, 1X/DAY
     Route: 048
     Dates: start: 201401
  2. CHANTIX [Suspect]
     Dosage: 1 MG, 2X/DAY (TOOK TWO DOSES OF CHANTIX WITHIN THREE HOURS)
     Dates: start: 20140129

REACTIONS (3)
  - Rash [Unknown]
  - Loss of dreaming [Unknown]
  - Drug effect incomplete [Unknown]
